FAERS Safety Report 10269340 (Version 1)
Quarter: 2014Q3

REPORT INFORMATION
  Report Type: Spontaneous
  Country: US (occurrence: US)
  Receive Date: 20140701
  Receipt Date: 20140701
  Transmission Date: 20150326
  Serious: Yes (Hospitalization)
  Sender: FDA-Public Use
  Company Number: US-UCBSA-2014003913

PATIENT
  Age: 28 Year
  Sex: Male
  Weight: 88.45 kg

DRUGS (1)
  1. KEPPRA [Suspect]
     Active Substance: LEVETIRACETAM
     Indication: CONVULSION
     Dosage: 30 ML/DAY

REACTIONS (1)
  - Gun shot wound [Recovered/Resolved]

NARRATIVE: CASE EVENT DATE: 20131023
